FAERS Safety Report 8900982 (Version 1)
Quarter: 2012Q4

REPORT INFORMATION
  Report Type: 
  Country: US (occurrence: US)
  Receive Date: 20121109
  Receipt Date: 20121109
  Transmission Date: 20130627
  Serious: Yes (Hospitalization)
  Sender: FDA-Public Use
  Company Number: PHEH2012US022063

PATIENT
  Age: 42 Year
  Sex: Female

DRUGS (1)
  1. GILENYA [Suspect]
     Indication: MULTIPLE SCLEROSIS
     Dosage: 0.5 mg, QD
     Route: 048
     Dates: start: 20121101

REACTIONS (6)
  - Wheezing [Unknown]
  - Rash erythematous [Unknown]
  - Dyspnoea [Unknown]
  - Hypoaesthesia [Unknown]
  - Dizziness [Unknown]
  - Heart rate decreased [Unknown]
